FAERS Safety Report 13142791 (Version 2)
Quarter: 2017Q1

REPORT INFORMATION
  Report Type: Spontaneous
  Country: TR (occurrence: TR)
  Receive Date: 20170123
  Receipt Date: 20170206
  Transmission Date: 20170428
  Serious: Yes (Hospitalization)
  Sender: FDA-Public Use
  Company Number: TR-ABBVIE-17P-161-1844217-00

PATIENT
  Age: 64 Year
  Sex: Male

DRUGS (3)
  1. GLIFOR [Concomitant]
     Active Substance: METFORMIN HYDROCHLORIDE
     Indication: DIABETES MELLITUS
     Dates: start: 20161230
  2. EXVIERA [Suspect]
     Active Substance: DASABUVIR
     Indication: HEPATITIS C
     Route: 048
     Dates: start: 20161230, end: 20170117
  3. VIEKIRAX [Suspect]
     Active Substance: OMBITASVIR\PARITAPREVIR\RITONAVIR
     Indication: HEPATITIS C
     Dosage: 1X2
     Route: 048
     Dates: start: 20161230, end: 20170117

REACTIONS (8)
  - Blood creatine increased [Recovered/Resolved]
  - Somnolence [Recovered/Resolved]
  - Blood uric acid increased [Recovered/Resolved]
  - Ascites [Recovering/Resolving]
  - Blood bilirubin increased [Recovered/Resolved]
  - Decreased appetite [Recovered/Resolved]
  - Abdominal distension [Recovered/Resolved]
  - Asthenia [Recovered/Resolved]

NARRATIVE: CASE EVENT DATE: 20170102
